FAERS Safety Report 8574311-2 (Version None)
Quarter: 2012Q3

REPORT INFORMATION
  Report Type: 
  Country: None (occurrence: None)
  Receive Date: 20120806
  Receipt Date: 20120720
  Transmission Date: 20120928
  Serious: No
  Sender: FDA-Public Use
  Company Number: US-BAYER-2012-074033

PATIENT
  Sex: Female

DRUGS (1)
  1. FINACEA [Suspect]

REACTIONS (3)
  - DRY SKIN [None]
  - TENDON INJURY [None]
  - MUSCLE STRAIN [None]
